FAERS Safety Report 7190373-1 (Version None)
Quarter: 2010Q4

REPORT INFORMATION
  Report Type: 
  Country: None (occurrence: None)
  Receive Date: 20101223
  Receipt Date: 20101217
  Transmission Date: 20110411
  Serious: Yes (Hospitalization)
  Sender: FDA-Public Use
  Company Number: FR-GENZYME-CAMP-1001215

PATIENT
  Sex: Male

DRUGS (12)
  1. CAMPATH [Suspect]
     Indication: CHRONIC LYMPHOCYTIC LEUKAEMIA
     Dosage: UNK
     Route: 065
  2. CAMPATH [Suspect]
     Dosage: UNK
     Route: 065
  3. CAMPATH [Suspect]
     Dosage: UNK
     Route: 065
  4. CAMPATH [Suspect]
     Dosage: UNK
     Route: 065
  5. CAMPATH [Suspect]
     Dosage: UNK
     Route: 065
  6. CAMPATH [Suspect]
     Dosage: UNK
     Route: 065
  7. CAMPATH [Suspect]
     Dosage: UNK
     Route: 065
  8. CAMPATH [Suspect]
     Dosage: UNK
     Route: 065
  9. CAMPATH [Suspect]
     Dosage: UNK
     Route: 065
  10. BACTRIM [Concomitant]
     Indication: PRODUCT USED FOR UNKNOWN INDICATION
  11. SPECIAFOLDINE [Concomitant]
     Indication: PRODUCT USED FOR UNKNOWN INDICATION
  12. PANTOPRAZOLE [Concomitant]
     Indication: PRODUCT USED FOR UNKNOWN INDICATION

REACTIONS (2)
  - DRUG RASH WITH EOSINOPHILIA AND SYSTEMIC SYMPTOMS [None]
  - INJECTION SITE REACTION [None]
